FAERS Safety Report 26113458 (Version 1)
Quarter: 2025Q4

REPORT INFORMATION
  Report Type: Report from Study
  Country: CN (occurrence: CN)
  Receive Date: 20251202
  Receipt Date: 20251202
  Transmission Date: 20260118
  Serious: Yes (Death, Hospitalization, Other)
  Sender: NOVARTIS
  Company Number: CN-002147023-NVSC2025CN183845

PATIENT
  Age: 46 Year
  Sex: Female
  Weight: 70.5 kg

DRUGS (6)
  1. PIQRAY [Suspect]
     Active Substance: ALPELISIB
     Indication: Hormone receptor positive HER2 negative breast cancer
     Dosage: 300 MG, QD
     Route: 048
     Dates: start: 20240409
  2. FULVESTRANT [Suspect]
     Active Substance: FULVESTRANT
     Indication: Hormone receptor positive HER2 negative breast cancer
     Dosage: 500 MG, QMO
     Route: 030
     Dates: start: 20240409
  3. OMEPRAZOLE [Concomitant]
     Active Substance: OMEPRAZOLE
     Indication: Flatulence
     Dosage: 20 MG, QD
     Route: 048
     Dates: start: 20240417
  4. DOMPERIDONE [Concomitant]
     Active Substance: DOMPERIDONE
     Indication: Flatulence
     Dosage: 10 MG, TID
     Route: 048
     Dates: start: 20240417
  5. LEUPROLIDE [Concomitant]
     Active Substance: LEUPROLIDE
     Indication: Product used for unknown indication
     Dosage: 3.6 MG, QMO
     Route: 065
     Dates: start: 20240325, end: 20240325
  6. LEUPROLIDE [Concomitant]
     Active Substance: LEUPROLIDE
     Dosage: 3.6 MG, QMO
     Route: 065
     Dates: start: 20240424, end: 20240424

REACTIONS (28)
  - Acute hepatic failure [Fatal]
  - Back pain [Not Recovered/Not Resolved]
  - Discomfort [Not Recovered/Not Resolved]
  - Leukopenia [Unknown]
  - Coma [Unknown]
  - Hepatic encephalopathy [Unknown]
  - Mental status changes [Unknown]
  - Metastases to bone [Unknown]
  - Metastases to liver [Unknown]
  - Lymphadenopathy [Unknown]
  - Hypoproteinaemia [Unknown]
  - Peritonitis [Unknown]
  - Hypokalaemia [Unknown]
  - Ascites [Unknown]
  - Hepatotoxicity [Unknown]
  - Panniculitis [Unknown]
  - Critical illness [Unknown]
  - General physical health deterioration [Unknown]
  - Hepatic function abnormal [Unknown]
  - Coagulopathy [Unknown]
  - Hyponatraemia [Unknown]
  - Pain [Unknown]
  - Vomiting [Unknown]
  - Gastritis [Unknown]
  - Constipation [Unknown]
  - Cough [Unknown]
  - Malnutrition [Unknown]
  - Pleural thickening [Unknown]

NARRATIVE: CASE EVENT DATE: 20240429
